FAERS Safety Report 8183034-3 (Version None)
Quarter: 2012Q1

REPORT INFORMATION
  Report Type: 
  Country: None (occurrence: None)
  Receive Date: 20120126
  Receipt Date: 20111118
  Transmission Date: 20120608
  Serious: Yes (Other)
  Sender: FDA-Public Use
  Company Number: PHEH2011US009846

PATIENT
  Age: 66 Year
  Sex: Female
  Weight: 68.5 kg

DRUGS (4)
  1. TEMODAR [Interacting]
  2. SIMVASTATIN [Concomitant]
  3. AFINITOR [Suspect]
     Indication: GLIOBLASTOMA
     Dosage: 5 MG, DAILY, ORAL
     Route: 048
     Dates: start: 20110811
  4. TARCEVA [Suspect]
     Indication: GLIOBLASTOMA
     Dosage: 100 MG, QD, ORAL
     Route: 048
     Dates: start: 20110811

REACTIONS (3)
  - URINARY TRACT INFECTION [None]
  - CYSTITIS [None]
  - BLOOD URINE PRESENT [None]
